FAERS Safety Report 10034889 (Version 1)
Quarter: 2014Q1

REPORT INFORMATION
  Report Type: Spontaneous
  Country: US (occurrence: None)
  Receive Date: 20140306
  Receipt Date: 20140306
  Transmission Date: 20141002
  Serious: Yes (Hospitalization)
  Sender: FDA-Public Use
  Company Number: 163-21880-13032997

PATIENT
  Age: 73 Year
  Sex: Female
  Weight: 79.38 kg

DRUGS (10)
  1. REVLIMID (LENALIDOMIDE) (CAPSULES) [Suspect]
     Indication: PLASMA CELL MYELOMA
     Route: 048
     Dates: start: 20090201
  2. AMITRIPTYLINE HCL (AMITRIPTYLINE HYDROCHLORIDE) [Concomitant]
  3. BISOPROLOL [Concomitant]
  4. DEXAMETHASONE [Concomitant]
  5. DIOVAN (VALSARTAN) [Concomitant]
  6. FISH OIL [Concomitant]
  7. FUROSEMIDE [Concomitant]
  8. MAGNESIUM [Concomitant]
  9. MULTIVITAMINS [Concomitant]
  10. POTASSIUM [Concomitant]

REACTIONS (1)
  - Pneumonia [None]
